FAERS Safety Report 6466237-5 (Version None)
Quarter: 2009Q4

REPORT INFORMATION
  Report Type: 
  Country: None (occurrence: None)
  Receive Date: 20091201
  Receipt Date: 20091201
  Transmission Date: 20100525
  Serious: Yes (Other)
  Sender: FDA-Public Use
  Company Number: None

PATIENT
  Age: 67 Year
  Sex: Male

DRUGS (7)
  1. PREDNISONE [Suspect]
     Indication: PROSTATE CANCER METASTATIC
     Dosage: ORAL
     Dates: start: 20090205
  2. IMC1121B (ANTI-VEGFR2 MAB) [Suspect]
     Dosage: 81.1429 MG (568 MG, 1 IN 1 WK) IV
     Route: 042
     Dates: start: 20090205, end: 20090730
  3. IMC-A12 (ANTI-IGF-IR MAB) [Suspect]
  4. IMC-A12 (ANTI-IGF-IR MAB) [Suspect]
  5. MITOXANTRONE (MITOXANTRONE) [Suspect]
     Indication: PROSTATE CANCER METASTATIC
     Dosage: 0.9048 MG (19 MG,1 IN 21 D) IV
     Route: 042
     Dates: start: 20090205, end: 20090723
  6. PREDNISONE [Suspect]
  7. ZOMETA [Concomitant]

REACTIONS (1)
  - OSTEONECROSIS [None]
